FAERS Safety Report 9365211 (Version 2)
Quarter: 2013Q2

REPORT INFORMATION
  Report Type: Spontaneous
  Country: JP (occurrence: JP)
  Receive Date: 20130624
  Receipt Date: 20130627
  Transmission Date: 20140414
  Serious: Yes (Hospitalization, Other)
  Sender: FDA-Public Use
  Company Number: JP-009507513-1306JPN006032

PATIENT
  Age: 59 Year
  Sex: Male
  Weight: 70 kg

DRUGS (8)
  1. PEGINTRON [Suspect]
     Indication: CHRONIC HEPATITIS C
     Dosage: 1.5 MICROGRAM/KG/WEEK
     Route: 058
     Dates: start: 20130404, end: 20130516
  2. REBETOL [Suspect]
     Indication: CHRONIC HEPATITIS C
     Dosage: 800 MG, QD
     Route: 048
     Dates: start: 20130404, end: 20130520
  3. TELAVIC [Suspect]
     Indication: CHRONIC HEPATITIS C
     Dosage: 2250 MG, QD
     Route: 048
     Dates: start: 20130404, end: 20130520
  4. ZYLORIC [Suspect]
     Dosage: FORMULATION-POR
     Route: 048
     Dates: start: 20130425, end: 20130521
  5. URSO [Concomitant]
     Indication: CHRONIC HEPATITIS C
     Dosage: 900 MG, QD, FORMULATION-POR
     Route: 048
     Dates: end: 20130425
  6. BAYASPIRIN [Concomitant]
     Dosage: 100 MG, QD, FORMULATION-POR
     Route: 048
  7. EPADEL S [Concomitant]
     Dosage: 1800 MG, QD, FORMULATION-POR
     Route: 048
  8. FLORID [Concomitant]
     Dosage: 20 G, QD
     Route: 048
     Dates: start: 20130521

REACTIONS (3)
  - Hyperuricaemia [Recovered/Resolved]
  - Drug eruption [Not Recovered/Not Resolved]
  - Glossitis [Recovering/Resolving]
